FAERS Safety Report 6528530-7 (Version None)
Quarter: 2010Q1

REPORT INFORMATION
  Report Type: 
  Country: None (occurrence: None)
  Receive Date: 20100106
  Receipt Date: 20091230
  Transmission Date: 20100710
  Serious: Yes (Hospitalization)
  Sender: FDA-Public Use
  Company Number: US-ABBOTT-09P-163-0616234-00

PATIENT
  Sex: Male
  Weight: 85.806 kg

DRUGS (13)
  1. NIASPAN [Suspect]
     Indication: DYSLIPIDAEMIA
     Route: 048
     Dates: start: 20090101
  2. NIASPAN [Suspect]
     Route: 048
     Dates: start: 20070101, end: 20090101
  3. PLAVIX [Concomitant]
     Indication: CORONARY ARTERIAL STENT INSERTION
     Route: 048
  4. ASPIRIN [Concomitant]
     Indication: DRUG USE FOR UNKNOWN INDICATION
     Route: 048
  5. ASPIRIN [Concomitant]
     Route: 048
  6. METAMUCIL [Concomitant]
     Indication: RECTAL HAEMORRHAGE
     Route: 048
  7. DULCOLAX [Concomitant]
     Indication: CONSTIPATION PROPHYLAXIS
     Route: 048
  8. LEVOTHYROXINE SODIUM [Concomitant]
     Indication: HYPOTHYROIDISM
     Route: 048
  9. CRESTOR [Concomitant]
     Indication: BLOOD CHOLESTEROL INCREASED
     Route: 048
  10. ACIPHEX [Concomitant]
     Indication: GASTROOESOPHAGEAL REFLUX DISEASE
     Route: 048
  11. VITAMIN C [Concomitant]
     Indication: VITAMIN SUPPLEMENTATION
     Route: 048
  12. VITAMIN D3 [Concomitant]
     Indication: VITAMIN SUPPLEMENTATION
     Route: 048
  13. FISH OIL [Concomitant]
     Indication: MEDICAL DIET
     Route: 048

REACTIONS (3)
  - DUODENAL NEOPLASM [None]
  - PANCREATITIS [None]
  - RECTAL HAEMORRHAGE [None]
